FAERS Safety Report 18968096 (Version 1)
Quarter: 2021Q1

REPORT INFORMATION
  Report Type: Spontaneous
  Country: US (occurrence: US)
  Receive Date: 20210303
  Receipt Date: 20210303
  Transmission Date: 20210420
  Serious: Yes (Hospitalization)
  Sender: FDA-Public Use
  Company Number: None

PATIENT
  Sex: Male
  Weight: 99.79 kg

DRUGS (14)
  1. CALCITRIOL. [Concomitant]
     Active Substance: CALCITRIOL
  2. LUMIGAN [Concomitant]
     Active Substance: BIMATOPROST
  3. CARVEDILOL. [Concomitant]
     Active Substance: CARVEDILOL
  4. TAMSULOSN [Suspect]
     Active Substance: TAMSULOSIN
  5. FERROUS SULFATE. [Concomitant]
     Active Substance: FERROUS SULFATE
  6. RETACRIT [Suspect]
     Active Substance: EPOETIN ALFA-EPBX
     Indication: MYELODYSPLASTIC SYNDROME
     Route: 058
     Dates: start: 20200622
  7. HYDRALAZINE [Concomitant]
     Active Substance: HYDRALAZINE HYDROCHLORIDE
  8. ISOSORBIDE. [Suspect]
     Active Substance: ISOSORBIDE
  9. NEPHRO VITE RX [Concomitant]
     Active Substance: ASCORBIC ACID\BIOTIN\CALCIUM PANTOTHENATE\CYANOCOBALAMIN\FOLIC ACID\NIACINAMIDE\PYRIDOXINE HYDROCHLORIDE\RIBOFLAVIN\THIAMINE MONONITRATE
  10. BUMETANIDE. [Concomitant]
     Active Substance: BUMETANIDE
  11. CRESTOR [Concomitant]
     Active Substance: ROSUVASTATIN CALCIUM
  12. COUMADIN [Concomitant]
     Active Substance: WARFARIN SODIUM
  13. IPRATOPIUM [Concomitant]
     Active Substance: IPRATROPIUM BROMIDE
  14. SODIUM BICARD [Concomitant]

REACTIONS (1)
  - COVID-19 [None]
